FAERS Safety Report 20343183 (Version 2)
Quarter: 2022Q1

REPORT INFORMATION
  Report Type: Spontaneous
  Country: US (occurrence: US)
  Receive Date: 20220117
  Receipt Date: 20220225
  Transmission Date: 20220424
  Serious: No
  Sender: FDA-Public Use
  Company Number: US-AMGEN-USASP2022003866

PATIENT
  Age: 68 Year
  Sex: Male
  Weight: 99.32 kg

DRUGS (1)
  1. REPATHA [Suspect]
     Active Substance: EVOLOCUMAB
     Indication: Product used for unknown indication
     Dosage: 420 MILLIGRAM
     Route: 065
     Dates: start: 20211014

REACTIONS (2)
  - Product dose omission issue [Unknown]
  - Wrong technique in product usage process [Unknown]

NARRATIVE: CASE EVENT DATE: 20220110
